FAERS Safety Report 7221955-6 (Version None)
Quarter: 2011Q1

REPORT INFORMATION
  Report Type: 
  Country: None (occurrence: None)
  Receive Date: 20110112
  Receipt Date: 20110105
  Transmission Date: 20110831
  Serious: Yes (Life-Threatening, Hospitalization)
  Sender: FDA-Public Use
  Company Number: B0692647A

PATIENT
  Age: 48 Year
  Sex: Male
  Weight: 70 kg

DRUGS (9)
  1. IMUREK [Suspect]
     Indication: SARCOIDOSIS
     Route: 065
     Dates: start: 20101007, end: 20101027
  2. VALTREX [Suspect]
     Indication: HERPES VIRUS INFECTION
     Route: 065
     Dates: start: 20101031, end: 20101104
  3. PIPERACILLIN SODIUM + TAZOBACTAM SODIUM [Suspect]
     Indication: BACTERIAL INFECTION
     Dosage: 4.5MG THREE TIMES PER DAY
     Route: 042
     Dates: start: 20101031, end: 20101110
  4. BENZYLPENICILLIN [Suspect]
     Indication: BACTERIAL INFECTION
     Route: 042
     Dates: start: 20101110, end: 20101114
  5. TAVANIC [Suspect]
     Indication: BACTERIAL INFECTION
     Dosage: 500MG TWICE PER DAY
     Route: 048
     Dates: start: 20101114, end: 20101206
  6. PREDNISONE [Concomitant]
     Indication: SARCOIDOSIS
     Dates: start: 20100907, end: 20101007
  7. RIMACTANE [Suspect]
     Indication: BACTERIAL INFECTION
     Dosage: 450MG TWICE PER DAY
     Route: 048
     Dates: start: 20101114, end: 20101206
  8. DIFLUCAN [Suspect]
     Indication: CANDIDIASIS
     Route: 065
     Dates: start: 20101101, end: 20101101
  9. CLAMOXYL [Suspect]
     Indication: BACTERIAL INFECTION
     Dosage: 2250MG PER DAY
     Route: 048
     Dates: start: 20101206

REACTIONS (11)
  - AGRANULOCYTOSIS [None]
  - STAPHYLOCOCCAL INFECTION [None]
  - SEPTIC EMBOLUS [None]
  - THROMBOCYTOPENIA [None]
  - NEUTROPENIA [None]
  - LEUKOPENIA [None]
  - HERPES VIRUS INFECTION [None]
  - ANAEMIA [None]
  - OESOPHAGEAL CANDIDIASIS [None]
  - PULMONARY EMBOLISM [None]
  - PANCYTOPENIA [None]
